FAERS Safety Report 23176963 (Version 1)
Quarter: 2023Q4

REPORT INFORMATION
  Report Type: Spontaneous
  Country: US (occurrence: None)
  Receive Date: 20231111
  Receipt Date: 20231111
  Transmission Date: 20240110
  Serious: No
  Sender: FDA-Public Use
  Company Number: None

PATIENT
  Age: 75 Year
  Sex: Male
  Weight: 61.65 kg

DRUGS (12)
  1. LANSOPRAZOLE [Suspect]
     Active Substance: LANSOPRAZOLE
     Indication: Helicobacter infection
     Dosage: OTHER QUANTITY : 1 CAPSULE(S);?FREQUENCY : TWICE A DAY;?
     Route: 048
     Dates: start: 20231108, end: 20231110
  2. LISINOPRIL [Concomitant]
     Active Substance: LISINOPRIL
  3. AMOXICILLIN [Concomitant]
     Active Substance: AMOXICILLIN
  4. LEVOFLOXACIN [Concomitant]
     Active Substance: LEVOFLOXACIN
  5. MAGNESIUM [Concomitant]
     Active Substance: MAGNESIUM
  6. VITAMIN D3 [Concomitant]
     Active Substance: CHOLECALCIFEROL
  7. SIMETHICONE (DIMETHICONE) [Concomitant]
     Active Substance: DIMETHICONE
  8. DOCUSATE SODIUM [Concomitant]
     Active Substance: DOCUSATE SODIUM
  9. VITAMIN B12 [Concomitant]
     Active Substance: CYANOCOBALAMIN
  10. OMEGA 3 [Concomitant]
     Active Substance: CAPSAICIN
  11. POLYETHYLENE GLYCOL [Concomitant]
     Active Substance: POLYETHYLENE GLYCOL
  12. PSYLLIUM [Concomitant]
     Active Substance: PLANTAGO SEED

REACTIONS (10)
  - Anxiety [None]
  - Brain fog [None]
  - Euphoric mood [None]
  - Sensory disturbance [None]
  - Dissociation [None]
  - Mood swings [None]
  - Euphoric mood [None]
  - Mania [None]
  - Anger [None]
  - Headache [None]

NARRATIVE: CASE EVENT DATE: 20231108
